FAERS Safety Report 25464761 (Version 2)
Quarter: 2025Q4

REPORT INFORMATION
  Report Type: Report from Study
  Country: US (occurrence: US)
  Receive Date: 20250622
  Receipt Date: 20251211
  Transmission Date: 20260117
  Serious: Yes (Other)
  Sender: TRAVERE THERAPEUTICS
  Company Number: US-TRAVERE-2025TVT00945

PATIENT
  Age: 20 Year
  Sex: Male
  Weight: 106.59 kg

DRUGS (6)
  1. FILSPARI [Suspect]
     Active Substance: SPARSENTAN
     Indication: Product used for unknown indication
     Route: 048
     Dates: start: 20250417, end: 202505
  2. FILSPARI [Suspect]
     Active Substance: SPARSENTAN
     Route: 048
     Dates: start: 202505
  3. ALBUTEROL [Concomitant]
     Active Substance: ALBUTEROL
  4. ALBUTEROL SULFATE [Concomitant]
     Active Substance: ALBUTEROL SULFATE
  5. DAPAGLIFLOZIN [Concomitant]
     Active Substance: DAPAGLIFLOZIN
  6. LEVOTHYROXINE [Concomitant]
     Active Substance: LEVOTHYROXINE

REACTIONS (6)
  - Glucose urine present [Unknown]
  - Urine protein/creatinine ratio increased [Unknown]
  - Specific gravity urine increased [Unknown]
  - Protein urine present [Unknown]
  - Blood urine present [Unknown]
  - Urine albumin/creatinine ratio increased [Unknown]

NARRATIVE: CASE EVENT DATE: 20250603
